FAERS Safety Report 21490579 (Version 1)
Quarter: 2022Q4

REPORT INFORMATION
  Report Type: Spontaneous
  Country: EG (occurrence: EG)
  Receive Date: 20221021
  Receipt Date: 20221021
  Transmission Date: 20230113
  Serious: Yes (Hospitalization, Other)
  Sender: FDA-Public Use
  Company Number: EG-NOVOPROD-968933

PATIENT
  Age: 90 Year
  Sex: Male
  Weight: 65 kg

DRUGS (3)
  1. NOVORAPID [Concomitant]
     Active Substance: INSULIN ASPART
     Indication: Diabetes mellitus
     Dosage: UNK
     Route: 058
     Dates: start: 2021
  2. INSULIN HUMAN [Suspect]
     Active Substance: INSULIN HUMAN
     Indication: Diabetes mellitus
     Dosage: 8 U TO 10 U ACCORDING TO BGL
     Route: 058
  3. CIDOPHAGE [Concomitant]
     Indication: Diabetes mellitus
     Dosage: UNK

REACTIONS (3)
  - Urinary tract infection [Recovered/Resolved]
  - Prostatitis [Recovered/Resolved]
  - Visual impairment [Not Recovered/Not Resolved]
